FAERS Safety Report 4919300-1 (Version None)
Quarter: 2006Q1

REPORT INFORMATION
  Report Type: 
  Country: None (occurrence: None)
  Receive Date: 20060113
  Receipt Date: 20051207
  Transmission Date: 20060701
  Serious: No
  Sender: FDA-Public Use
  Company Number: 2005SP004310

PATIENT
  Age: 76 Year
  Sex: Male

DRUGS (7)
  1. LUNESTA [Suspect]
     Dosage: 2 MG; HS; ORAL
     Route: 048
     Dates: start: 20050101
  2. DEXTROMETHORPHAN HYDROBROMIDE [Concomitant]
  3. ATORVASTATIN CALCIUM [Concomitant]
  4. THYROID TAB [Concomitant]
  5. LOPRESSOR [Concomitant]
  6. AMIODARONE HCL [Concomitant]
  7. SALICYLIC ACID [Concomitant]

REACTIONS (2)
  - DRUG INEFFECTIVE [None]
  - INSOMNIA [None]
